FAERS Safety Report 8534530-8 (Version None)
Quarter: 2012Q3

REPORT INFORMATION
  Report Type: 
  Country: None (occurrence: None)
  Receive Date: 20120724
  Receipt Date: 20120712
  Transmission Date: 20120928
  Serious: Yes (Death, Hospitalization, Other)
  Sender: FDA-Public Use
  Company Number: DE-BRISTOL-MYERS SQUIBB COMPANY-16701179

PATIENT
  Age: 70 Year
  Sex: Male
  Weight: 72 kg

DRUGS (1)
  1. IPILIMUMAB [Suspect]
     Indication: METASTATIC MALIGNANT MELANOMA
     Dosage: 08MAR2012,03MAY2012: 220
     Route: 042
     Dates: start: 20120227

REACTIONS (7)
  - MENTAL DISORDER DUE TO A GENERAL MEDICAL CONDITION [None]
  - SEPSIS [None]
  - DIARRHOEA [None]
  - RENAL FAILURE ACUTE [None]
  - DEHYDRATION [None]
  - DERMATITIS [None]
  - JEJUNAL PERFORATION [None]
